FAERS Safety Report 11139833 (Version 1)
Quarter: 2015Q2

REPORT INFORMATION
  Report Type: Spontaneous
  Country: US (occurrence: US)
  Receive Date: 20150527
  Receipt Date: 20150527
  Transmission Date: 20150821
  Serious: Yes (Other)
  Sender: FDA-Public Use
  Company Number: US-PFIZER INC-2015173778

PATIENT
  Age: 68 Year
  Sex: Female
  Weight: 74 kg

DRUGS (6)
  1. KLOR-CON [Concomitant]
     Active Substance: POTASSIUM CHLORIDE
     Dosage: UNK, AS NEEDED
  2. HCTZ [Concomitant]
     Active Substance: HYDROCHLOROTHIAZIDE
     Dosage: UNK, AS NEEDED
  3. CLONOPIN [Concomitant]
     Active Substance: CLONAZEPAM
     Dosage: UNK, AS NEEDED
  4. NARDIL [Suspect]
     Active Substance: PHENELZINE SULFATE
     Indication: PANIC ATTACK
     Dosage: 15 MG,(2 PILLS ONE DAY, 2 PILLS NEXT AND 3 PILLS THE NEXT DAY AND THEN SHE GOES BACK TO 2 PILLS ONE)
     Dates: start: 1982
  5. NORVASC [Concomitant]
     Active Substance: AMLODIPINE BESYLATE
     Dosage: UNK, AS NEEDED
  6. LESCOL [Concomitant]
     Active Substance: FLUVASTATIN SODIUM
     Dosage: UNK, AS NEEDED

REACTIONS (2)
  - Drug dependence [Unknown]
  - Drug ineffective [Unknown]
